FAERS Safety Report 14335769 (Version 1)
Quarter: 2017Q4

REPORT INFORMATION
  Report Type: Other
  Country: GB (occurrence: GB)
  Receive Date: 20171229
  Receipt Date: 20171229
  Transmission Date: 20180321
  Serious: Yes (Disabling, Other)
  Sender: FDA-Public Use
  Company Number: GB-IPCA LABORATORIES LIMITED-IPC-2017-GB-003947

PATIENT
  Sex: Female

DRUGS (1)
  1. METFORMIN [Suspect]
     Active Substance: METFORMIN HYDROCHLORIDE
     Indication: DIABETES MELLITUS
     Dosage: THREE TIMES A WEEK (UNSPECIFIED) ()

REACTIONS (6)
  - Malaise [Unknown]
  - Back pain [Unknown]
  - Eye movement disorder [Unknown]
  - Arthralgia [Unknown]
  - Skin discolouration [Unknown]
  - Paraesthesia oral [Unknown]
